FAERS Safety Report 16749843 (Version 3)
Quarter: 2020Q4

REPORT INFORMATION
  Report Type: Report from Study
  Country: US (occurrence: US)
  Receive Date: 20190828
  Receipt Date: 20201219
  Transmission Date: 20210113
  Serious: No
  Sender: FDA-Public Use
  Company Number: PHEH2019US035337

PATIENT
  Sex: Male

DRUGS (1)
  1. COSENTYX [Suspect]
     Active Substance: SECUKINUMAB
     Indication: PSORIASIS
     Dosage: 300 MG, Q4W
     Route: 058
     Dates: start: 2019, end: 2019

REACTIONS (4)
  - Skin fissures [Not Recovered/Not Resolved]
  - Pigmentation disorder [Unknown]
  - Drug ineffective [Unknown]
  - Pruritus [Unknown]
